FAERS Safety Report 16806201 (Version 1)
Quarter: 2019Q3

REPORT INFORMATION
  Report Type: Spontaneous
  Country: CA (occurrence: CA)
  Receive Date: 20190913
  Receipt Date: 20190913
  Transmission Date: 20191005
  Serious: Yes (Other)
  Sender: FDA-Public Use
  Company Number: CA-PFIZER INC-2018004967

PATIENT
  Age: 70 Year
  Sex: Female

DRUGS (6)
  1. CELEBREX [Suspect]
     Active Substance: CELECOXIB
     Indication: RHEUMATOID ARTHRITIS
     Dosage: 200 MG, 2X/DAY (BID)
     Route: 048
  2. SYNTHROID [Concomitant]
     Active Substance: LEVOTHYROXINE SODIUM
     Dosage: UNK
  3. BETALOC [Concomitant]
     Active Substance: METOPROLOL TARTRATE
     Indication: HEART RATE IRREGULAR
     Dosage: UNK
  4. LOSEC [Concomitant]
     Active Substance: OMEPRAZOLE
     Indication: ABDOMINAL DISCOMFORT
     Dosage: UNK
  5. PREDNISONE. [Suspect]
     Active Substance: PREDNISONE
     Indication: RHEUMATOID ARTHRITIS
     Dosage: 5 MG, 1X/DAY (OD)
  6. PROCTOL [Concomitant]
     Dosage: UNK

REACTIONS (5)
  - Infection [Unknown]
  - Weight decreased [Unknown]
  - Herpes zoster [Not Recovered/Not Resolved]
  - Drug ineffective [Unknown]
  - Influenza [Unknown]
